FAERS Safety Report 16868885 (Version 1)
Quarter: 2019Q3

REPORT INFORMATION
  Report Type: Spontaneous
  Country: US (occurrence: US)
  Receive Date: 20190930
  Receipt Date: 20190930
  Transmission Date: 20191005
  Serious: No
  Sender: FDA-Public Use
  Company Number: US-PARAPRO-2018PP000071

PATIENT

DRUGS (13)
  1. PRENATAL VITAMINS                  /02014401/ [Concomitant]
     Active Substance: VITAMINS
     Indication: HAIR DISORDER
     Dosage: UNK UNK, QD
  2. ESOMEPRAZOLE STRONTIUM. [Suspect]
     Active Substance: ESOMEPRAZOLE STRONTIUM
     Indication: VOCAL CORD INFLAMMATION
     Dosage: 2 CAPSULES QD
     Route: 048
     Dates: start: 201807
  3. AMOXICILLIN+CLAVULANIC ACID [Suspect]
     Active Substance: AMOXICILLIN\CLAVULANIC ACID
     Indication: INFECTION
  4. PAROXETINE. [Concomitant]
     Active Substance: PAROXETINE
     Indication: AFFECTIVE DISORDER
     Dosage: UNK
  5. REPATHA [Concomitant]
     Active Substance: EVOLOCUMAB
     Indication: BLOOD CHOLESTEROL INCREASED
     Dosage: 140 MG, UNK
  6. OXYBUTYNIN. [Concomitant]
     Active Substance: OXYBUTYNIN CHLORIDE
     Indication: BLADDER DISORDER
     Dosage: UNK
  7. METOPROLOL. [Concomitant]
     Active Substance: METOPROLOL
     Indication: HYPERTENSION
     Dosage: UNK
  8. CARBIDOPA/LEVODOPA [Concomitant]
     Active Substance: CARBIDOPA\LEVODOPA
     Indication: PARKINSON^S DISEASE
     Dosage: UNK
  9. ASPIRIN                            /00002701/ [Concomitant]
     Active Substance: ASPIRIN
     Indication: PRODUCT USED FOR UNKNOWN INDICATION
     Dosage: 81 MG, QD
  10. PRENATAL VITAMINS                  /02014401/ [Concomitant]
     Active Substance: VITAMINS
     Indication: NAIL DISORDER
  11. MAGNESIUM [Concomitant]
     Active Substance: MAGNESIUM
     Indication: PRODUCT USED FOR UNKNOWN INDICATION
     Dosage: UNK
  12. CBD CAPSULE [Concomitant]
     Indication: PRODUCT USED FOR UNKNOWN INDICATION
     Dosage: UNK
  13. OMEPRAZOLE. [Concomitant]
     Active Substance: OMEPRAZOLE
     Dosage: 20 MG, QD

REACTIONS (7)
  - Onychoclasis [Recovering/Resolving]
  - Abdominal pain upper [Not Recovered/Not Resolved]
  - Skin atrophy [Unknown]
  - Dizziness [Unknown]
  - Tooth discolouration [Unknown]
  - Wrong dose [Unknown]
  - Diarrhoea [Not Recovered/Not Resolved]
